FAERS Safety Report 7301519-6 (Version None)
Quarter: 2011Q1

REPORT INFORMATION
  Report Type: 
  Country: None (occurrence: None)
  Receive Date: 20110218
  Receipt Date: 20100920
  Transmission Date: 20110831
  Serious: No
  Sender: FDA-Public Use
  Company Number: US-BRISTOL-MYERS SQUIBB COMPANY-15296668

PATIENT
  Age: 60 Year
  Sex: Female

DRUGS (2)
  1. KENALOG [Suspect]
     Dosage: 40MG:16MAY2006 HIP-40MG: 07NOV08,02FEB09,10FEB09,26MAY2009
     Route: 030
     Dates: start: 20060515
  2. ROCEPHIN [Concomitant]
     Route: 030

REACTIONS (3)
  - INJECTION SITE ATROPHY [None]
  - SKIN DISCOLOURATION [None]
  - ARTHRALGIA [None]
